FAERS Safety Report 24634473 (Version 2)
Quarter: 2025Q2

REPORT INFORMATION
  Report Type: Spontaneous
  Country: CA (occurrence: CA)
  Receive Date: 20241119
  Receipt Date: 20250507
  Transmission Date: 20250716
  Serious: Yes (Other)
  Sender: CSL BEHRING
  Company Number: CA-BEH-2024185564

PATIENT
  Age: 79 Year
  Sex: Female
  Weight: 77 kg

DRUGS (17)
  1. ALBUREX [Suspect]
     Active Substance: ALBUMIN HUMAN
     Indication: Surgery
     Route: 042
  2. ALBUREX [Suspect]
     Active Substance: ALBUMIN HUMAN
     Indication: Surgery
     Route: 042
  3. ALBUREX [Suspect]
     Active Substance: ALBUMIN HUMAN
     Indication: Laparotomy
  4. DEXTROSE [Concomitant]
     Active Substance: DEXTROSE MONOHYDRATE
  5. PHENYLEPHRINE [Concomitant]
     Active Substance: PHENYLEPHRINE
  6. PIPERACILLIN SODIUM\TAZOBACTAM SODIUM [Concomitant]
     Active Substance: PIPERACILLIN SODIUM\TAZOBACTAM SODIUM
  7. PROPOFOL [Concomitant]
     Active Substance: PROPOFOL
  8. PROPRANOLOL HYDROCHLORIDE [Concomitant]
     Active Substance: PROPRANOLOL HYDROCHLORIDE
  9. ROCURONIUM [Concomitant]
     Active Substance: ROCURONIUM BROMIDE
  10. TYLENOL [Concomitant]
     Active Substance: ACETAMINOPHEN
  11. SUCCINYLCHOLINE CHLORIDE [Concomitant]
     Active Substance: SUCCINYLCHOLINE CHLORIDE
     Route: 042
  12. REMIFENTANIL [Concomitant]
     Active Substance: REMIFENTANIL
  13. METRONIDAZOLE [Concomitant]
     Active Substance: METRONIDAZOLE
  14. MAGNESIUM [Concomitant]
     Active Substance: MAGNESIUM
  15. FENTANYL [Concomitant]
     Active Substance: FENTANYL
  16. EPHEDRINE HYDROCHLORIDE [Concomitant]
     Active Substance: EPHEDRINE HYDROCHLORIDE
  17. CEFAZOLIN [Concomitant]
     Active Substance: CEFAZOLIN

REACTIONS (22)
  - Allergic transfusion reaction [Recovered/Resolved]
  - Atelectasis [Recovered/Resolved]
  - Blood pressure decreased [Recovered/Resolved]
  - Candida test positive [Recovered/Resolved]
  - Fungal test positive [Recovered/Resolved]
  - Heart rate increased [Recovered/Resolved]
  - Hypotension [Recovered/Resolved]
  - Hypoxia [Recovered/Resolved]
  - Lung consolidation [Recovered/Resolved]
  - Oxygen saturation decreased [Recovered/Resolved]
  - Oxygen therapy [Recovered/Resolved]
  - Pleural effusion [Recovered/Resolved]
  - Pulmonary oedema [Recovered/Resolved]
  - Tachycardia [Recovered/Resolved]
  - Transfusion reaction [Recovered/Resolved]
  - Staphylococcus test positive [Recovered/Resolved]
  - Abscess bacterial [Recovered/Resolved]
  - Corynebacterium test positive [Recovered/Resolved]
  - Urine output decreased [Recovered/Resolved]
  - Anaphylactic reaction [Recovered/Resolved]
  - Circulatory collapse [Recovered/Resolved]
  - Pulse absent [Recovered/Resolved]
